FAERS Safety Report 4319568-9 (Version None)
Quarter: 2004Q1

REPORT INFORMATION
  Report Type: 
  Country: None (occurrence: None)
  Receive Date: 20040319
  Receipt Date: 20030827
  Transmission Date: 20041129
  Serious: Yes (Death)
  Sender: FDA-Public Use
  Company Number: ES-ROCHE-345462

PATIENT
  Age: 47 Year
  Sex: Male

DRUGS (9)
  1. FUZEON [Suspect]
     Indication: HIV INFECTION
     Dosage: STRENGTH REPORTED AS 90.
     Route: 058
     Dates: start: 20020901, end: 20030821
  2. ABACAVIR [Concomitant]
     Indication: HIV INFECTION
     Route: 048
     Dates: start: 20020901, end: 20030821
  3. LAMIVUDINE [Concomitant]
     Indication: HIV INFECTION
     Route: 048
     Dates: start: 20020901, end: 20030821
  4. SAQUINAVIR [Concomitant]
     Indication: HIV INFECTION
     Route: 048
     Dates: start: 20020901, end: 20030821
  5. TENOFOVIR [Concomitant]
     Route: 048
     Dates: start: 20020901, end: 20030821
  6. RITONAVIR [Concomitant]
     Dosage: DOSE REPORTED AS 100/160 MG
     Route: 048
     Dates: start: 20020901, end: 20030821
  7. INDINAVIR [Concomitant]
     Dates: start: 20000224, end: 20000814
  8. SULFAMETHOXAZOLE [Concomitant]
     Dates: start: 20021025, end: 20030821
  9. ACYCLOVIR [Concomitant]
     Dates: start: 20011001, end: 20011022

REACTIONS (5)
  - DIALYSIS [None]
  - DIARRHOEA [None]
  - GASTROENTERITIS CRYPTOSPORIDIAL [None]
  - RENAL FAILURE ACUTE [None]
  - VOMITING [None]
